FAERS Safety Report 7447761-5 (Version None)
Quarter: 2011Q2

REPORT INFORMATION
  Report Type: 
  Country: None (occurrence: None)
  Receive Date: 20110429
  Receipt Date: 20100817
  Transmission Date: 20111010
  Serious: No
  Sender: FDA-Public Use
  Company Number: US-ASTRAZENECA-2010SE38831

PATIENT
  Sex: Male

DRUGS (2)
  1. NEXIUM [Suspect]
     Dosage: 1 CAPSULE IN THE MORNING
     Route: 048
  2. NEXIUM [Suspect]
     Dosage: 1 CAPSULE IN THE MORNING AND IN THE EVENING
     Route: 048

REACTIONS (2)
  - ABDOMINAL DISCOMFORT [None]
  - INTENTIONAL DRUG MISUSE [None]
